FAERS Safety Report 6871501-1 (Version None)
Quarter: 2010Q3

REPORT INFORMATION
  Report Type: 
  Country: None (occurrence: None)
  Receive Date: 20100723
  Receipt Date: 20100712
  Transmission Date: 20110219
  Serious: Yes (Other)
  Sender: FDA-Public Use
  Company Number: US-PFIZER INC-2010087651

PATIENT
  Sex: Male

DRUGS (3)
  1. DILANTIN-125 [Suspect]
     Indication: EPILEPSY
     Dosage: UNK
     Route: 048
  2. TRILEPTAL [Suspect]
  3. PHENOBARBITAL [Suspect]

REACTIONS (7)
  - ASTHENIA [None]
  - ATAXIA [None]
  - BALANCE DISORDER [None]
  - GAIT DISTURBANCE [None]
  - HYPOAESTHESIA [None]
  - NEUROPATHY PERIPHERAL [None]
  - PAIN [None]
